FAERS Safety Report 8402319-6 (Version None)
Quarter: 2012Q2

REPORT INFORMATION
  Report Type: 
  Country: None (occurrence: None)
  Receive Date: 20120601
  Receipt Date: 20120529
  Transmission Date: 20120825
  Serious: Yes (Life-Threatening, Hospitalization)
  Sender: FDA-Public Use
  Company Number: JP-B.I. PHARMACEUTICALS,INC./RIDGEFIELD-2012-BP-12474NB

PATIENT
  Age: 83 Year

DRUGS (2)
  1. PRADAXA [Suspect]
     Indication: ATRIAL FIBRILLATION
     Dosage: 300 MG
     Route: 048
     Dates: start: 20120428, end: 20120501
  2. LASIX [Concomitant]
     Indication: CARDIAC FAILURE CHRONIC
     Route: 048

REACTIONS (4)
  - HEPATITIS [None]
  - RENAL DISORDER [None]
  - HYPOGLYCAEMIA [None]
  - VOMITING [None]
